FAERS Safety Report 6847693-7 (Version None)
Quarter: 2010Q3

REPORT INFORMATION
  Report Type: 
  Country: None (occurrence: None)
  Receive Date: 20100716
  Receipt Date: 20100706
  Transmission Date: 20110219
  Serious: Yes (Hospitalization)
  Sender: FDA-Public Use
  Company Number: PHHY2010VE45043

PATIENT
  Sex: Male

DRUGS (7)
  1. EXJADE [Suspect]
     Indication: IRON OVERLOAD
     Dosage: 1500 MG, QD
     Route: 048
     Dates: start: 20100601
  2. HYDREA [Concomitant]
     Dosage: 1000 MG ONE DAY
     Dates: start: 20100101
  3. HYDREA [Concomitant]
     Dosage: 500 MG
  4. RECORMON [Concomitant]
     Dosage: ONCE A WEEK
     Route: 058
     Dates: start: 20100401
  5. ALURON [Concomitant]
     Dosage: 2 TABLETS DAILY
     Route: 048
     Dates: start: 20100101
  6. OMEPRAZOLE [Concomitant]
     Dosage: 40 MG, BID
     Route: 048
     Dates: start: 20100101
  7. FOLIC ACID [Concomitant]
     Dosage: 10 MG, QD
     Route: 048
     Dates: start: 20100101

REACTIONS (4)
  - ANAL ABSCESS [None]
  - HAEMOGLOBIN DECREASED [None]
  - PYREXIA [None]
  - TRANSFUSION [None]
